FAERS Safety Report 15456635 (Version 1)
Quarter: 2018Q4

REPORT INFORMATION
  Report Type: Spontaneous
  Country: IT (occurrence: JP)
  Receive Date: 20181002
  Receipt Date: 20181002
  Transmission Date: 20190204
  Serious: Yes (Other)
  Sender: FDA-Public Use
  Company Number: IT-LEADIANT BIOSCIENCES INC-2018STPI000606

PATIENT

DRUGS (2)
  1. CARNITOR SF [Suspect]
     Active Substance: LEVOCARNITINE
     Indication: CARNITINE DEFICIENCY
     Dosage: UNK UNK, QD
     Route: 048
  2. POLAPREZINC [Concomitant]
     Active Substance: POLAPREZINC

REACTIONS (2)
  - Generalised oedema [Unknown]
  - Pulmonary oedema [Unknown]
